FAERS Safety Report 9052781 (Version 2)
Quarter: 2013Q3

REPORT INFORMATION
  Report Type: Report from Study
  Country: JP (occurrence: JP)
  Receive Date: 20130207
  Receipt Date: 20130920
  Transmission Date: 20140515
  Serious: Yes (Other)
  Sender: FDA-Public Use
  Company Number: JP-VERTEX PHARMACEUTICALS INC.-2013-001595

PATIENT
  Age: 54 Year
  Sex: Female

DRUGS (13)
  1. VX-950 (TELAPREVIR) [Suspect]
     Indication: CHRONIC HEPATITIS C
     Dosage: 2250 MG, QD
     Route: 048
     Dates: start: 20120411, end: 20120612
  2. RIBAVIRIN [Suspect]
     Indication: CHRONIC HEPATITIS C
     Dosage: 800 MG, QD
     Route: 048
     Dates: start: 20120411, end: 20120515
  3. RIBAVIRIN [Suspect]
     Dosage: 600 MG, QD
     Route: 048
     Dates: start: 20120516, end: 20120523
  4. RIBAVIRIN [Suspect]
     Dosage: 400 MG, QD
     Route: 048
     Dates: start: 20120711, end: 20120926
  5. PEGINTERFERON ALFA-2B [Suspect]
     Indication: CHRONIC HEPATITIS C
     Dosage: 1.5 ?G/KG, QW
     Route: 058
     Dates: start: 20120411, end: 20120926
  6. MAGLAX [Concomitant]
     Dosage: 1000 MG, QD
     Route: 048
     Dates: start: 20120412, end: 20120620
  7. PRIMPERAN [Concomitant]
     Dosage: 5 MG, QD
     Route: 048
     Dates: start: 20120415, end: 20120523
  8. EBASTEL OD [Concomitant]
     Dosage: 10 MG, QD
     Route: 048
     Dates: start: 20120416
  9. NAUZELIN [Concomitant]
     Dosage: 30 MG, QD
     Route: 048
     Dates: start: 20120422, end: 20120620
  10. NAUZELIN [Concomitant]
     Dosage: 30 MG, QD
     Route: 048
     Dates: start: 20120829
  11. DOGMATYL [Concomitant]
     Dosage: 150 MG, QD
     Route: 048
     Dates: start: 20120522, end: 20120704
  12. ZYLORIC [Concomitant]
     Dosage: 200 MG, QD
     Route: 048
     Dates: start: 20120522
  13. URSO [Concomitant]
     Dosage: 600 MG, QD
     Route: 048
     Dates: start: 20120829

REACTIONS (2)
  - Retinal haemorrhage [Recovered/Resolved]
  - Anaemia [Recovered/Resolved]
